FAERS Safety Report 10029564 (Version 1)
Quarter: 2014Q1

REPORT INFORMATION
  Report Type: Spontaneous
  Country: US (occurrence: None)
  Receive Date: 20140320
  Receipt Date: 20140320
  Transmission Date: 20141002
  Serious: Yes (Disabling)
  Sender: FDA-Public Use
  Company Number: None

PATIENT
  Age: 8 Year
  Sex: Male
  Weight: 25.4 kg

DRUGS (2)
  1. CHILDREN^S ALLERGY RELIEF [Suspect]
     Indication: DERMATITIS ATOPIC
     Dosage: 1 CHEWABLE PILL ONCE DAILY TAKEN BY MOUTH
     Route: 048
     Dates: start: 20140317
  2. CHILDREN^S ALLERGY RELIEF [Suspect]
     Indication: PRURITUS
     Dosage: 1 CHEWABLE PILL ONCE DAILY TAKEN BY MOUTH
     Route: 048
     Dates: start: 20140317

REACTIONS (3)
  - Milk allergy [None]
  - Product label issue [None]
  - Pruritus generalised [None]
